FAERS Safety Report 20588749 (Version 1)
Quarter: 2022Q1

REPORT INFORMATION
  Report Type: Spontaneous
  Country: US (occurrence: None)
  Receive Date: 20220311
  Receipt Date: 20220311
  Transmission Date: 20220423
  Serious: Yes (Other)
  Sender: FDA-Public Use
  Company Number: None

PATIENT
  Sex: Male

DRUGS (1)
  1. TESTOPEL [Suspect]
     Active Substance: TESTOSTERONE
     Indication: Prostate cancer
     Dosage: OTHER ROUTE : IMPLANT?
     Route: 050
     Dates: start: 20190523

REACTIONS (2)
  - Prostate cancer [None]
  - Hepatic cancer [None]
